FAERS Safety Report 5594998-6 (Version None)
Quarter: 2007Q4

REPORT INFORMATION
  Report Type: 
  Country: None (occurrence: None)
  Receive Date: 20071218
  Receipt Date: 20070320
  Transmission Date: 20080405
  Serious: Yes (Hospitalization, Other)
  Sender: FDA-Public Use
  Company Number: 2007022981

PATIENT
  Age: 22 Year
  Sex: Female

DRUGS (1)
  1. BEXTRA [Suspect]
     Indication: CARPAL TUNNEL SYNDROME
     Dosage: 20 MG
     Dates: start: 20030206

REACTIONS (2)
  - ANXIETY [None]
  - MYOCARDIAL INFARCTION [None]
